FAERS Safety Report 23433117 (Version 1)
Quarter: 2024Q1

REPORT INFORMATION
  Report Type: Spontaneous
  Country: AU (occurrence: AU)
  Receive Date: 20240123
  Receipt Date: 20240123
  Transmission Date: 20240410
  Serious: Yes (Hospitalization)
  Sender: FDA-Public Use
  Company Number: AU-RECKITT BENCKISER HEALTHCARE INT LIMITED-RB-097683-2023

PATIENT
  Age: 6 Year
  Sex: Female

DRUGS (2)
  1. IBUPROFEN [Suspect]
     Active Substance: IBUPROFEN
     Indication: Pyrexia
     Dosage: UNK
     Route: 065
     Dates: start: 202106
  2. IBUPROFEN [Suspect]
     Active Substance: IBUPROFEN
     Indication: Headache

REACTIONS (16)
  - Abdominal pain [Recovered/Resolved]
  - Discomfort [Recovered/Resolved]
  - Lymphadenopathy [Recovered/Resolved]
  - Scar [Recovered/Resolved]
  - Pneumothorax [Recovered/Resolved]
  - Urinary tract infection [Recovered/Resolved]
  - Panic attack [Recovered/Resolved]
  - Fluid retention [Recovered/Resolved]
  - Condition aggravated [Recovered/Resolved]
  - Palpitations [Recovered/Resolved]
  - Organ failure [Recovered/Resolved]
  - Intestinal perforation [Recovered/Resolved]
  - Vomiting projectile [Recovered/Resolved]
  - Swelling [Recovered/Resolved]
  - Cough [Recovered/Resolved]
  - Drug ineffective [Not Recovered/Not Resolved]

NARRATIVE: CASE EVENT DATE: 20210101
